FAERS Safety Report 14681518 (Version 10)
Quarter: 2021Q3

REPORT INFORMATION
  Report Type: Spontaneous
  Country: JP (occurrence: JP)
  Receive Date: 20180326
  Receipt Date: 20210722
  Transmission Date: 20211014
  Serious: Yes (Life-Threatening, Hospitalization, Other)
  Sender: FDA-Public Use
  Company Number: JP-UNITED THERAPEUTICS-UNT-2016-002217

PATIENT
  Age: 41 Year
  Sex: Female
  Weight: 46 kg

DRUGS (34)
  1. REMODULIN [Suspect]
     Active Substance: TREPROSTINIL
     Dosage: 0.1 ?G/KG, CONTINUING
     Route: 058
  2. LASIX [Concomitant]
     Active Substance: FUROSEMIDE
     Indication: CARDIAC FAILURE CHRONIC
     Dosage: 80 MG, PER DAY
     Route: 048
  3. LIPITOR [Concomitant]
     Active Substance: ATORVASTATIN CALCIUM
     Indication: PRODUCT USED FOR UNKNOWN INDICATION
     Dosage: 10 MG, PER DAY
     Route: 048
     Dates: end: 20160327
  4. DAIKENCHUTO [Concomitant]
     Active Substance: HERBALS
     Indication: PROPHYLAXIS
     Dosage: UNK
     Route: 048
     Dates: end: 20180117
  5. REMODULIN [Suspect]
     Active Substance: TREPROSTINIL
     Dosage: 0.0011 ?G/KG, CONTINUING
     Route: 058
     Dates: start: 201512
  6. BERASUS [Concomitant]
     Active Substance: BERAPROST SODIUM
     Indication: NEUROFIBROMATOSIS
     Dosage: 360 ?G, PER DAY
     Route: 048
     Dates: start: 201007, end: 20171220
  7. SAMSCA [Concomitant]
     Active Substance: TOLVAPTAN
     Indication: CARDIAC FAILURE CHRONIC
     Dosage: 7.5 MG, PER DAY
     Route: 048
  8. OPSUMIT [Concomitant]
     Active Substance: MACITENTAN
     Indication: NEUROFIBROMATOSIS
     Dosage: 10 MG, PER DAY
     Route: 048
     Dates: start: 20160622
  9. REMODULIN [Suspect]
     Active Substance: TREPROSTINIL
     Dosage: 0.0036 ?G/KG, CONTINUING
     Route: 058
     Dates: start: 201512, end: 20151230
  10. UPTRAVI [Concomitant]
     Active Substance: SELEXIPAG
     Indication: NEUROFIBROMATOSIS
     Dosage: UNK
     Route: 048
     Dates: start: 20171220
  11. REMODULIN [Suspect]
     Active Substance: TREPROSTINIL
     Dosage: UNK, CONTINUING (FLOW RATE OF 20.0 MCL/HR)
     Route: 058
     Dates: start: 20191201
  12. REMODULIN [Suspect]
     Active Substance: TREPROSTINIL
     Dosage: 0.091 ?G/KG, CONTINUING
     Route: 058
     Dates: start: 201912
  13. SLOW?K [Concomitant]
     Active Substance: POTASSIUM CHLORIDE
     Indication: MINERAL SUPPLEMENTATION
  14. PRIMPERAN [Concomitant]
     Active Substance: METOCLOPRAMIDE HYDROCHLORIDE
     Indication: PROPHYLAXIS
     Dosage: UNK, PRN
     Route: 048
     Dates: end: 20160622
  15. BELSOMRA [Concomitant]
     Active Substance: SUVOREXANT
     Indication: PROPHYLAXIS
     Dosage: 20 MG, PER DAY
     Route: 048
     Dates: start: 20160720
  16. PARIET [Concomitant]
     Active Substance: RABEPRAZOLE SODIUM
     Indication: PROPHYLAXIS
     Dosage: 10 MG, PER DAY
     Route: 048
     Dates: start: 20161116, end: 20170117
  17. FERROMIA [Concomitant]
     Active Substance: SODIUM FERROUS CITRATE
     Indication: PRODUCT USED FOR UNKNOWN INDICATION
     Dosage: 50 MG, PER DAY
     Route: 048
     Dates: start: 20161116
  18. REMODULIN [Suspect]
     Active Substance: TREPROSTINIL
     Dosage: 0.092 ?G/KG, CONTINUING (FLOW RATE WAS AT 21.0 MCL/HR)
     Route: 058
     Dates: start: 201912
  19. REMODULIN [Suspect]
     Active Substance: TREPROSTINIL
     Dosage: 0.111 ?G/KG, CONTINUING
     Route: 058
  20. ALDACTONE A [Concomitant]
     Active Substance: SPIRONOLACTONE
     Indication: CARDIAC FAILURE CHRONIC
     Dosage: 50 MG, PER DAY
     Route: 048
  21. TRAMAL [Concomitant]
     Active Substance: TRAMADOL
     Indication: PROPHYLAXIS
     Dosage: UNK
     Route: 048
     Dates: start: 20160310
  22. TRACLEER [Concomitant]
     Active Substance: BOSENTAN
     Indication: NEUROFIBROMATOSIS
     Dosage: 250 MG, PER DAY
     Route: 048
     Dates: start: 200710, end: 20160622
  23. REVATIO [Concomitant]
     Active Substance: SILDENAFIL CITRATE
     Indication: NEUROFIBROMATOSIS
     Dosage: 60 MG, PER DAY
     Route: 048
     Dates: start: 200905, end: 20160720
  24. ADEMPAS [Concomitant]
     Active Substance: RIOCIGUAT
     Indication: NEUROFIBROMATOSIS
     Dosage: UNK
     Route: 048
     Dates: start: 20160720
  25. REMODULIN [Suspect]
     Active Substance: TREPROSTINIL
     Indication: NEUROFIBROMATOSIS
     Dosage: UNK, CONTINUING
     Route: 058
     Dates: start: 20151218
  26. REMODULIN [Suspect]
     Active Substance: TREPROSTINIL
     Dosage: 0.003 ?G/KG, CONTINUING
     Route: 058
     Dates: start: 201603
  27. REMODULIN [Suspect]
     Active Substance: TREPROSTINIL
     Dosage: 0.1 ?G/KG, CONTINUING ((FLOW RATE OF 19.5 MCL/HR)
     Route: 058
  28. ADCIRCA [Concomitant]
     Active Substance: TADALAFIL
     Indication: NEUROFIBROMATOSIS
     Dosage: 40 MG, PER DAY
     Route: 048
     Dates: start: 201301, end: 20160720
  29. LOXONIN [Concomitant]
     Active Substance: LOXOPROFEN SODIUM
     Indication: PROPHYLAXIS
     Dosage: UNK
     Route: 062
  30. REMODULIN [Suspect]
     Active Substance: TREPROSTINIL
     Dosage: UNK, CONTINUING
     Route: 058
     Dates: start: 20160310
  31. REMODULIN [Suspect]
     Active Substance: TREPROSTINIL
     Dosage: 0.139 ?G/KG, CONTINUING
     Route: 058
     Dates: start: 2020
  32. SLOW?K [Concomitant]
     Active Substance: POTASSIUM CHLORIDE
     Indication: MEDICAL DIET
     Dosage: 3600 MG, PER DAY
     Route: 048
  33. MS ONSHIPPU [Concomitant]
     Active Substance: CAMPHOR\CAPSICUM\METHYL SALICYLATE
     Indication: PROPHYLAXIS
     Dosage: UNK
     Route: 062
     Dates: end: 20170117
  34. GASMOTIN [Concomitant]
     Active Substance: MOSAPRIDE CITRATE
     Indication: PROPHYLAXIS
     Dosage: UNK
     Route: 048
     Dates: end: 20180117

REACTIONS (15)
  - Emotional distress [Recovering/Resolving]
  - Neurectomy [Recovering/Resolving]
  - Infusion site pain [Recovering/Resolving]
  - Nausea [Recovering/Resolving]
  - Skin disorder [Unknown]
  - Intestinal obstruction [Recovering/Resolving]
  - Abdominal pain upper [Recovered/Resolved]
  - Postoperative wound infection [Recovering/Resolving]
  - Infusion site reaction [Unknown]
  - Intestinal obstruction [Recovering/Resolving]
  - Neoplasm of appendix [Unknown]
  - Neoplasm skin [Recovering/Resolving]
  - Product use in unapproved indication [Unknown]
  - Mechanical ileus [Unknown]
  - Blood potassium decreased [Recovering/Resolving]

NARRATIVE: CASE EVENT DATE: 20151218
